FAERS Safety Report 6615429-0 (Version None)
Quarter: 2010Q1

REPORT INFORMATION
  Report Type: 
  Country: None (occurrence: None)
  Receive Date: 20100305
  Receipt Date: 20100114
  Transmission Date: 20100710
  Serious: No
  Sender: FDA-Public Use
  Company Number: A0835230A

PATIENT
  Age: 66 Year
  Sex: Female
  Weight: 68.6 kg

DRUGS (9)
  1. REQUIP [Suspect]
     Indication: RESTLESS LEGS SYNDROME
     Route: 048
  2. ALENDRONATE SODIUM [Concomitant]
     Dosage: 70MG WEEKLY
     Route: 048
  3. CITALOPRAM [Concomitant]
     Dosage: 20MG PER DAY
  4. LISINOPRIL [Concomitant]
     Dosage: 10MG PER DAY
  5. METFORMIN HYDROCHLORIDE [Concomitant]
     Dosage: 1000MG TWICE PER DAY
  6. OMEPRAZOLE [Concomitant]
     Dosage: 20MG TWICE PER DAY
  7. NITROGLYCERIN [Concomitant]
     Dosage: .4MG AS REQUIRED
  8. SIMVASTATIN [Concomitant]
  9. AMBIEN [Concomitant]
     Dosage: 10MG AS REQUIRED

REACTIONS (1)
  - THERAPEUTIC RESPONSE UNEXPECTED [None]
